FAERS Safety Report 12624230 (Version 2)
Quarter: 2016Q3

REPORT INFORMATION
  Report Type: Spontaneous
  Country: DK (occurrence: DK)
  Receive Date: 20160805
  Receipt Date: 20160815
  Transmission Date: 20161109
  Serious: Yes (Disabling, Other)
  Sender: FDA-Public Use
  Company Number: DK-ROCHE-1611171

PATIENT
  Age: 71 Year
  Sex: Female
  Weight: 80 kg

DRUGS (4)
  1. OXALIPLATIN. [Concomitant]
     Active Substance: OXALIPLATIN
     Indication: RECTAL CANCER METASTATIC
     Dosage: STRENGTH: 5 MG/ML.
     Route: 042
  2. CAPECITABINE. [Concomitant]
     Active Substance: CAPECITABINE
     Indication: RECTAL CANCER METASTATIC
     Route: 048
     Dates: start: 20150603, end: 20150624
  3. MORPHINE [Concomitant]
     Active Substance: MORPHINE
     Indication: PAIN
     Route: 065
  4. AVASTIN [Suspect]
     Active Substance: BEVACIZUMAB
     Indication: METASTASES TO LIVER
     Dosage: STRENGTH: 25 MG/ML.?MOST RECENT DOSE RECEIVED ON 24/JUN/2015
     Route: 042
     Dates: start: 20150603, end: 20150624

REACTIONS (5)
  - Cerebral haemorrhage [Recovered/Resolved with Sequelae]
  - Hemiplegia [Unknown]
  - Confusional state [Unknown]
  - Aphasia [Unknown]
  - Hypertension [Unknown]

NARRATIVE: CASE EVENT DATE: 20150630
